FAERS Safety Report 6391551-1 (Version None)
Quarter: 2009Q4

REPORT INFORMATION
  Report Type: 
  Country: None (occurrence: None)
  Receive Date: 20091005
  Receipt Date: 20090825
  Transmission Date: 20100525
  Serious: Yes (Other)
  Sender: FDA-Public Use
  Company Number: 1022556-2009-00230

PATIENT
  Sex: Male

DRUGS (1)
  1. ICY HOT BALM [Suspect]
     Indication: ANALGESIC THERAPY
     Dosage: TOPICAL
     Route: 061
     Dates: start: 20070907

REACTIONS (1)
  - THERMAL BURN [None]
